FAERS Safety Report 5359089-8 (Version None)
Quarter: 2007Q2

REPORT INFORMATION
  Report Type: 
  Country: None (occurrence: None)
  Receive Date: 20070615
  Receipt Date: 20070611
  Transmission Date: 20071010
  Serious: Yes (Hospitalization)
  Sender: FDA-Public Use
  Company Number: BR-BRISTOL-MYERS SQUIBB COMPANY-13797691

PATIENT
  Age: 52 Year
  Sex: Female

DRUGS (4)
  1. ABATACEPT [Suspect]
     Indication: RHEUMATOID ARTHRITIS
     Route: 042
     Dates: start: 20060517
  2. METHOTREXATE [Suspect]
     Route: 048
     Dates: start: 20060201
  3. PREDNISONE TAB [Concomitant]
     Dates: start: 20030801
  4. FOLIC ACID [Concomitant]
     Dates: start: 20030801

REACTIONS (3)
  - ANAL FISSURE [None]
  - ANAL SKIN TAGS [None]
  - HYPERTROPHIC ANAL PAPILLA [None]
